FAERS Safety Report 5236208-5 (Version None)
Quarter: 2007Q1

REPORT INFORMATION
  Report Type: 
  Country: None (occurrence: None)
  Receive Date: 20070212
  Receipt Date: 20070202
  Transmission Date: 20070707
  Serious: No
  Sender: FDA-Public Use
  Company Number: JP-BAXTER-2007BH001732

PATIENT
  Age: 52 Year
  Sex: Female
  Weight: 64 kg

DRUGS (1)
  1. PROPLEX T [Suspect]
     Indication: HAEMORRHAGE
     Route: 042

REACTIONS (5)
  - CEREBRAL INFARCTION [None]
  - HAEMATURIA [None]
  - HYDRONEPHROSIS [None]
  - LACUNAR INFARCTION [None]
  - VISUAL FIELD DEFECT [None]
